FAERS Safety Report 9850940 (Version 2)
Quarter: 2014Q1

REPORT INFORMATION
  Report Type: Report from Study
  Country: US (occurrence: US)
  Receive Date: 20140128
  Receipt Date: 20140320
  Transmission Date: 20141002
  Serious: Yes (Hospitalization, Other)
  Sender: FDA-Public Use
  Company Number: US-ABBVIE-14P-163-1192526-00

PATIENT
  Sex: Female
  Weight: 59.93 kg

DRUGS (2)
  1. HUMIRA [Suspect]
     Indication: CROHN^S DISEASE
     Route: 058
     Dates: start: 201208, end: 2013
  2. HUMIRA [Suspect]
     Dosage: 40MG EVERY WEEK
     Dates: start: 2013

REACTIONS (4)
  - Colon dysplasia [Recovering/Resolving]
  - Intestinal mass [Unknown]
  - Drug effect decreased [Unknown]
  - Diarrhoea [Unknown]
